FAERS Safety Report 9539788 (Version 1)
Quarter: 2013Q3

REPORT INFORMATION
  Report Type: Spontaneous
  Country: US (occurrence: US)
  Receive Date: 20130920
  Receipt Date: 20130920
  Transmission Date: 20140515
  Serious: No
  Sender: FDA-Public Use
  Company Number: US-PURDUE-USA-2013-0101865

PATIENT
  Age: 66 Year
  Sex: Male

DRUGS (1)
  1. INTERMEZZO [Suspect]
     Indication: MIDDLE INSOMNIA
     Dosage: 1.75 MG, UNK
     Route: 060
     Dates: start: 20130429, end: 20130429

REACTIONS (4)
  - Nightmare [Recovered/Resolved]
  - Neuralgia [Recovered/Resolved]
  - Anxiety [Recovered/Resolved]
  - Incorrect drug dosage form administered [Unknown]
